FAERS Safety Report 22384987 (Version 2)
Quarter: 2023Q2

REPORT INFORMATION
  Report Type: Spontaneous
  Country: US (occurrence: US)
  Receive Date: 20230530
  Receipt Date: 20230627
  Transmission Date: 20230722
  Serious: Yes (Other)
  Sender: FDA-Public Use
  Company Number: US-JNJFOC-20230549441

PATIENT
  Age: 30 Year
  Sex: Female
  Weight: 83.99 kg

DRUGS (2)
  1. STELARA [Suspect]
     Active Substance: USTEKINUMAB
     Indication: Crohn^s disease
     Route: 058
     Dates: start: 2020
  2. STELARA [Suspect]
     Active Substance: USTEKINUMAB

REACTIONS (27)
  - Crohn^s disease [Unknown]
  - Needle issue [Unknown]
  - Syringe issue [Unknown]
  - Underdose [Unknown]
  - Product complaint [Unknown]
  - Device issue [Unknown]
  - Accidental exposure to product [Unknown]
  - Wrong technique in product usage process [Unknown]
  - Injection site reaction [Recovered/Resolved]
  - Malaise [Unknown]
  - Nausea [Unknown]
  - Fatigue [Unknown]
  - Headache [Unknown]
  - Asthenia [Unknown]
  - Nasopharyngitis [Unknown]
  - Dyspepsia [Unknown]
  - Gait disturbance [Unknown]
  - Psoriasis [Unknown]
  - Drug ineffective [Unknown]
  - Finger deformity [Unknown]
  - Peripheral swelling [Unknown]
  - Arthralgia [Unknown]
  - Inflammation [Unknown]
  - Pain [Unknown]
  - Diarrhoea [Unknown]
  - Drug delivery system malfunction [Unknown]
  - Injection site pain [Unknown]

NARRATIVE: CASE EVENT DATE: 20230517
